FAERS Safety Report 11998299 (Version 1)
Quarter: 2016Q1

REPORT INFORMATION
  Report Type: Spontaneous
  Country: US (occurrence: None)
  Receive Date: 20160203
  Receipt Date: 20160203
  Transmission Date: 20160526
  Serious: Yes (Disabling)
  Sender: FDA-Public Use
  Company Number: None

PATIENT
  Age: 41 Year
  Sex: Female
  Weight: 79.38 kg

DRUGS (4)
  1. PLAQUENIL [Concomitant]
     Active Substance: HYDROXYCHLOROQUINE SULFATE
  2. ARTICAINE [Suspect]
     Active Substance: ARTICAINE
     Indication: TOOTH EXTRACTION
     Dates: start: 20150116
  3. ARTICAINE [Suspect]
     Active Substance: ARTICAINE
     Indication: ANAESTHESIA PROCEDURE
     Dates: start: 20150116
  4. LYRICA [Concomitant]
     Active Substance: PREGABALIN

REACTIONS (1)
  - Nerve injury [None]

NARRATIVE: CASE EVENT DATE: 20150116
